FAERS Safety Report 17347778 (Version 1)
Quarter: 2020Q1

REPORT INFORMATION
  Report Type: Report from Study
  Country: US (occurrence: US)
  Receive Date: 20200129
  Receipt Date: 20200129
  Transmission Date: 20200409
  Serious: No
  Sender: FDA-Public Use
  Company Number: US-EXELIXIS-CABO-19025276

PATIENT
  Sex: Male

DRUGS (2)
  1. CABOMETYX [Suspect]
     Active Substance: CABOZANTINIB S-MALATE
     Dosage: 60 MG, QD(AM W/O FOOD)
  2. CABOMETYX [Suspect]
     Active Substance: CABOZANTINIB S-MALATE
     Indication: RENAL CELL CARCINOMA
     Dosage: 60 MG, QD(AM W/O FOOD)
     Dates: start: 20190928

REACTIONS (6)
  - Skin discolouration [Unknown]
  - Pain in extremity [Unknown]
  - Contusion [Recovering/Resolving]
  - Diarrhoea [Unknown]
  - Product dose omission [Unknown]
  - Taste disorder [Unknown]
